FAERS Safety Report 15113819 (Version 1)
Quarter: 2018Q3

REPORT INFORMATION
  Report Type: Spontaneous
  Country: US (occurrence: US)
  Receive Date: 20180706
  Receipt Date: 20180706
  Transmission Date: 20181010
  Serious: No
  Sender: FDA-Public Use
  Company Number: US-009507513-1806USA004391

PATIENT
  Sex: Female
  Weight: 63.95 kg

DRUGS (1)
  1. NEXPLANON [Suspect]
     Active Substance: ETONOGESTREL
     Dosage: 1 IMPLANT, EVERY 3 YEARS
     Route: 059
     Dates: start: 20180501

REACTIONS (4)
  - Decreased appetite [Unknown]
  - Polymenorrhoea [Unknown]
  - Metrorrhagia [Unknown]
  - Weight decreased [Unknown]

NARRATIVE: CASE EVENT DATE: 2018
